FAERS Safety Report 22644337 (Version 3)
Quarter: 2024Q2

REPORT INFORMATION
  Report Type: Spontaneous
  Country: BR (occurrence: BR)
  Receive Date: 20230627
  Receipt Date: 20240604
  Transmission Date: 20240715
  Serious: Yes (Other)
  Sender: FDA-Public Use
  Company Number: BR-GLAXOSMITHKLINE-BR2022AMR025308

PATIENT

DRUGS (7)
  1. BENLYSTA [Suspect]
     Active Substance: BELIMUMAB
     Indication: Systemic lupus erythematosus
     Dosage: 120 MG, Q4W
     Route: 042
     Dates: start: 20210716
  2. BENLYSTA [Suspect]
     Active Substance: BELIMUMAB
     Dosage: 600 MG (5 X 120 MG)
     Route: 042
     Dates: start: 20210716
  3. CLOBETASOL PROPIONATE [Suspect]
     Active Substance: CLOBETASOL PROPIONATE
     Indication: Product used for unknown indication
     Dosage: UNK, TID
  4. HYDROXYCHLOROQUINE [Suspect]
     Active Substance: HYDROXYCHLOROQUINE
     Indication: Systemic lupus erythematosus
     Dosage: UNK
  5. METHOTREXATE [Concomitant]
     Active Substance: METHOTREXATE
     Indication: Folliculitis
     Dosage: UNK
  6. METHOTREXATE [Concomitant]
     Active Substance: METHOTREXATE
     Indication: Arthralgia
  7. METHOTREXATE [Concomitant]
     Active Substance: METHOTREXATE
     Indication: Limb injury

REACTIONS (29)
  - Blindness [Unknown]
  - Asthenia [Not Recovered/Not Resolved]
  - Fatigue [Recovered/Resolved]
  - Nausea [Not Recovered/Not Resolved]
  - Eating disorder [Unknown]
  - Decreased appetite [Unknown]
  - Urinary tract infection [Not Recovered/Not Resolved]
  - Platelet count decreased [Not Recovered/Not Resolved]
  - Weight decreased [Recovered/Resolved]
  - Pharyngitis [Recovered/Resolved]
  - Emotional disorder [Unknown]
  - Psoriasis [Unknown]
  - Wound [Unknown]
  - Skin wound [Unknown]
  - Skin exfoliation [Unknown]
  - Skin discolouration [Unknown]
  - Skin fissures [Unknown]
  - Condition aggravated [Unknown]
  - Nervousness [Unknown]
  - Pain [Unknown]
  - Arthralgia [Not Recovered/Not Resolved]
  - Hypertension [Recovered/Resolved]
  - Neck pain [Unknown]
  - Osteopenia [Unknown]
  - Limb injury [Not Recovered/Not Resolved]
  - Folliculitis [Not Recovered/Not Resolved]
  - Inappropriate schedule of product administration [Unknown]
  - Product dose omission issue [Unknown]
  - Prescription drug used without a prescription [Unknown]

NARRATIVE: CASE EVENT DATE: 20220101
